FAERS Safety Report 13383401 (Version 5)
Quarter: 2017Q3

REPORT INFORMATION
  Report Type: Report from Study
  Country: CO (occurrence: CO)
  Receive Date: 20170329
  Receipt Date: 20170926
  Transmission Date: 20171127
  Serious: Yes (Hospitalization, Other)
  Sender: FDA-Public Use
  Company Number: PHHY2017CO044635

PATIENT
  Age: 55 Year
  Sex: Female
  Weight: 50 kg

DRUGS (5)
  1. SANDOSTATIN LAR DEPOT [Suspect]
     Active Substance: OCTREOTIDE ACETATE
     Indication: ACROMEGALY
     Dosage: 30 MG, QMO (ONCE MONTH)
     Route: 030
     Dates: start: 20141001
  2. LOVASTATIN. [Concomitant]
     Active Substance: LOVASTATIN
     Indication: PRODUCT USED FOR UNKNOWN INDICATION
     Route: 065
  3. METFORMIN [Suspect]
     Active Substance: METFORMIN HYDROCHLORIDE
     Indication: PRODUCT USED FOR UNKNOWN INDICATION
     Route: 065
  4. LOSARTAN. [Suspect]
     Active Substance: LOSARTAN
     Indication: PRODUCT USED FOR UNKNOWN INDICATION
     Route: 065
  5. CABERGOLINE. [Concomitant]
     Active Substance: CABERGOLINE
     Indication: PRODUCT USED FOR UNKNOWN INDICATION
     Route: 065

REACTIONS (12)
  - Weight decreased [Not Recovered/Not Resolved]
  - Musculoskeletal pain [Unknown]
  - Dizziness [Unknown]
  - Headache [Unknown]
  - Ovarian neoplasm [Unknown]
  - Biliary cyst [Unknown]
  - Uterine prolapse [Unknown]
  - Arthralgia [Unknown]
  - Infrequent bowel movements [Unknown]
  - Ovarian cyst [Unknown]
  - Gait inability [Unknown]
  - Stitch abscess [Unknown]

NARRATIVE: CASE EVENT DATE: 20161101
